FAERS Safety Report 7274430-7 (Version None)
Quarter: 2011Q1

REPORT INFORMATION
  Report Type: 
  Country: None (occurrence: None)
  Receive Date: 20110204
  Receipt Date: 20110124
  Transmission Date: 20110831
  Serious: Yes (Other)
  Sender: FDA-Public Use
  Company Number: FR-JNJFOC-20100703027

PATIENT
  Sex: Female
  Weight: 31.6 kg

DRUGS (3)
  1. INFLIXIMAB [Suspect]
     Indication: INFLAMMATORY BOWEL DISEASE
     Route: 042
  2. AZATHIOPRINE [Concomitant]
  3. INFLIXIMAB [Suspect]
     Route: 042

REACTIONS (3)
  - INFUSION RELATED REACTION [None]
  - HYPERSENSITIVITY [None]
  - RESPIRATORY DISTRESS [None]
